FAERS Safety Report 8188292-7 (Version None)
Quarter: 2012Q1

REPORT INFORMATION
  Report Type: 
  Country: None (occurrence: None)
  Receive Date: 20120306
  Receipt Date: 20120131
  Transmission Date: 20120608
  Serious: Yes (Hospitalization, Other)
  Sender: FDA-Public Use
  Company Number: US-ROCHE-1001669

PATIENT
  Sex: Male
  Weight: 205 kg

DRUGS (2)
  1. ACCUTANE [Suspect]
     Dates: start: 19890110, end: 19890121
  2. ACCUTANE [Suspect]
     Indication: ACNE
     Dates: start: 19880101

REACTIONS (10)
  - PROCTITIS [None]
  - INFLAMMATORY BOWEL DISEASE [None]
  - ANXIETY [None]
  - SUICIDAL IDEATION [None]
  - CROHN'S DISEASE [None]
  - ANAL FISTULA [None]
  - ANAL ABSCESS [None]
  - DEPRESSION [None]
  - PANIC ATTACK [None]
  - OSTEOPENIA [None]
